FAERS Safety Report 6127163-4 (Version None)
Quarter: 2009Q1

REPORT INFORMATION
  Report Type: 
  Country: None (occurrence: None)
  Receive Date: 20090320
  Receipt Date: 20090316
  Transmission Date: 20090719
  Serious: Yes (Life-Threatening, Hospitalization)
  Sender: FDA-Public Use
  Company Number: CA-GILEAD-2009-0020214

PATIENT
  Sex: Male

DRUGS (5)
  1. TRUVADA [Suspect]
     Indication: HIV INFECTION
     Route: 048
     Dates: start: 20070112, end: 20080705
  2. SUSTIVA [Suspect]
     Indication: HIV INFECTION
     Route: 048
     Dates: start: 20070112, end: 20080705
  3. IBUPROFEN TABLETS [Concomitant]
     Route: 048
  4. LOSEC [Concomitant]
     Route: 048
  5. FACTOR VIII [Concomitant]

REACTIONS (1)
  - ACUTE HEPATIC FAILURE [None]
